FAERS Safety Report 6724862-8 (Version None)
Quarter: 2010Q2

REPORT INFORMATION
  Report Type: 
  Country: None (occurrence: None)
  Receive Date: 20100513
  Receipt Date: 20100513
  Transmission Date: 20101027
  Serious: Yes (Hospitalization)
  Sender: FDA-Public Use
  Company Number: None

PATIENT
  Sex: Male
  Weight: 90.7194 kg

DRUGS (6)
  1. NIASPAN [Suspect]
     Indication: HIGH DENSITY LIPOPROTEIN ABNORMAL
     Dosage: TAKEN ONLY ONCE
     Dates: start: 20100414
  2. CARVEDILOL [Concomitant]
  3. DILTIAZEM HYD [Concomitant]
  4. HYDROCHLOROT [Concomitant]
  5. RAMIPRIL [Concomitant]
  6. CRESTOR [Concomitant]

REACTIONS (5)
  - DIZZINESS [None]
  - FLUSHING [None]
  - HEART RATE IRREGULAR [None]
  - HYPERHIDROSIS [None]
  - SUPRAVENTRICULAR EXTRASYSTOLES [None]
